FAERS Safety Report 16210702 (Version 1)
Quarter: 2019Q2

REPORT INFORMATION
  Report Type: Spontaneous
  Country: US (occurrence: US)
  Receive Date: 20190314
  Receipt Date: 20190314
  Transmission Date: 20190711
  Serious: No
  Sender: FDA-Public Use
  Company Number: None

PATIENT
  Age: 73 Year
  Sex: Female
  Weight: 81.65 kg

DRUGS (1)
  1. REPATHA [Suspect]
     Active Substance: EVOLOCUMAB
     Dosage: ?          OTHER FREQUENCY:OTHER;?
     Route: 058

REACTIONS (7)
  - Rash erythematous [None]
  - Skin induration [None]
  - Rash [None]
  - Skin burning sensation [None]
  - Telangiectasia [None]
  - Pain of skin [None]
  - Skin exfoliation [None]

NARRATIVE: CASE EVENT DATE: 20190313
